FAERS Safety Report 5095201-6 (Version None)
Quarter: 2006Q3

REPORT INFORMATION
  Report Type: 
  Country: None (occurrence: None)
  Receive Date: 20060901
  Receipt Date: 20060821
  Transmission Date: 20061208
  Serious: Yes (Life-Threatening)
  Sender: FDA-Public Use
  Company Number: FR-GLAXOSMITHKLINE-B0434803A

PATIENT
  Age: 52 Year
  Sex: Male
  Weight: 63 kg

DRUGS (3)
  1. KIVEXA [Suspect]
     Dosage: 1TAB TWICE PER DAY
     Route: 048
     Dates: start: 20051123
  2. IMOVANE [Suspect]
     Dosage: 1TAB PER DAY
     Route: 048
     Dates: start: 20030312, end: 20060520
  3. VIRAMUNE [Suspect]
     Dosage: 1TAB TWICE PER DAY
     Route: 048
     Dates: start: 20060315

REACTIONS (1)
  - MYOCARDIAL INFARCTION [None]
